FAERS Safety Report 18729838 (Version 1)
Quarter: 2021Q1

REPORT INFORMATION
  Report Type: Spontaneous
  Country: US (occurrence: US)
  Receive Date: 20210112
  Receipt Date: 20210112
  Transmission Date: 20210419
  Serious: Yes (Other)
  Sender: FDA-Public Use
  Company Number: US-EXELA PHARMA SCIENCES, LLC-2020EXL00027

PATIENT
  Sex: Female

DRUGS (6)
  1. JYNARQUE [Suspect]
     Active Substance: TOLVAPTAN
     Dosage: UNK
  2. JYNARQUE [Suspect]
     Active Substance: TOLVAPTAN
     Dosage: UNK
  3. JYNARQUE [Suspect]
     Active Substance: TOLVAPTAN
     Dosage: UNK
  4. SODIUM BICARBONATE. [Suspect]
     Active Substance: SODIUM BICARBONATE
     Indication: PRODUCT USED FOR UNKNOWN INDICATION
  5. JYNARQUE [Suspect]
     Active Substance: TOLVAPTAN
     Indication: CONGENITAL CYSTIC KIDNEY DISEASE
     Dosage: UNK
     Dates: start: 20191003
  6. JYNARQUE [Suspect]
     Active Substance: TOLVAPTAN
     Dosage: UNK

REACTIONS (8)
  - Influenza [Unknown]
  - Hypotension [Unknown]
  - Decreased appetite [Unknown]
  - Contusion [Unknown]
  - Nasopharyngitis [Unknown]
  - Urine abnormality [Unknown]
  - Rash [Unknown]
  - Cyst rupture [Unknown]

NARRATIVE: CASE EVENT DATE: 20191024
